FAERS Safety Report 6717893 (Version 2)
Quarter: 2013Q1

REPORT INFORMATION
  Report Type: Spontaneous
  Country: FR (occurrence: FR)
  Receive Date: 20080804
  Receipt Date: 20130123
  Transmission Date: 20140127
  Serious: Yes (Hospitalization, Other)
  Sender: FDA-Public Use
  Company Number: FR-AMGEN-US298086

PATIENT
  Age: 12 Year
  Sex: Female

DRUGS (5)
  1. ENBREL [Suspect]
     Indication: JUVENILE IDIOPATHIC ARTHRITIS
     Dosage: 25 MG, QWK
     Route: 058
     Dates: start: 20071003, end: 20080212
  2. NAPROXEN SODIUM [Suspect]
     Dosage: UNK
     Route: 048
     Dates: end: 200803
  3. METHOTREXATE [Suspect]
     Dosage: 25 MG, QWK
     Route: 058
     Dates: start: 20070808, end: 20080211
  4. METHOTREXATE [Suspect]
     Dosage: 25 MG, QWK
     Route: 058
     Dates: start: 20000212
  5. MORPHINE SULFATE [Concomitant]
     Dosage: UNK UNK, UNK
     Route: 048

REACTIONS (12)
  - Hepatocellular injury [Unknown]
  - Mobility decreased [Unknown]
  - Diplopia [Unknown]
  - Epistaxis [Unknown]
  - Rectal haemorrhage [Unknown]
  - Arthritis [Unknown]
  - Gastritis haemorrhagic [Unknown]
  - Headache [Unknown]
  - Asthenia [Unknown]
  - Local reaction [Unknown]
  - Injection site hypersensitivity [Recovered/Resolved]
  - Injection site oedema [Recovered/Resolved]
